FAERS Safety Report 9448004 (Version 1)
Quarter: 2013Q3

REPORT INFORMATION
  Report Type: Spontaneous
  Country: US (occurrence: None)
  Receive Date: 20130807
  Receipt Date: 20130807
  Transmission Date: 20140515
  Serious: Yes (Other)
  Sender: FDA-Public Use
  Company Number: None

PATIENT
  Sex: Male

DRUGS (1)
  1. ATIVAN [Suspect]
     Indication: SEDATION
     Dosage: 1 PILL QD

REACTIONS (2)
  - Sedation [None]
  - Loss of consciousness [None]
